FAERS Safety Report 19244427 (Version 1)
Quarter: 2021Q2

REPORT INFORMATION
  Report Type: Spontaneous
  Country: CA (occurrence: CA)
  Receive Date: 20210511
  Receipt Date: 20210511
  Transmission Date: 20210717
  Serious: Yes (Other)
  Sender: FDA-Public Use
  Company Number: NVSC2021CA101199

PATIENT
  Age: 20 Month
  Sex: Male

DRUGS (1)
  1. ZOLGENSMA [Suspect]
     Active Substance: ONASEMNOGENE ABEPARVOVEC-XIOI
     Indication: SPINAL MUSCULAR ATROPHY
     Dosage: UNK
     Route: 042
     Dates: start: 202009

REACTIONS (4)
  - Thrombocytopenia [Unknown]
  - Liver function test increased [Unknown]
  - Transaminases abnormal [Unknown]
  - Immune thrombocytopenia [Unknown]
